FAERS Safety Report 5876832-X (Version None)
Quarter: 2008Q3

REPORT INFORMATION
  Report Type: 
  Country: None (occurrence: None)
  Receive Date: 20080908
  Receipt Date: 20080908
  Transmission Date: 20090109
  Serious: Yes (Other)
  Sender: FDA-Public Use
  Company Number: None

PATIENT
  Sex: Female
  Weight: 64.8644 kg

DRUGS (1)
  1. BUPROPION HCL [Suspect]
     Indication: DEPRESSION
     Dosage: 300 MG ONCE DAILY PO
     Route: 048
     Dates: start: 20080601, end: 20080905

REACTIONS (8)
  - ALOPECIA [None]
  - ANHEDONIA [None]
  - CONDITION AGGRAVATED [None]
  - DEPRESSED MOOD [None]
  - FATIGUE [None]
  - HEADACHE [None]
  - NAUSEA [None]
  - PHARMACEUTICAL PRODUCT COMPLAINT [None]
